FAERS Safety Report 16663515 (Version 2)
Quarter: 2019Q4

REPORT INFORMATION
  Report Type: Report from Study
  Country: US (occurrence: US)
  Receive Date: 20190802
  Receipt Date: 20191014
  Transmission Date: 20200122
  Serious: Yes (Hospitalization)
  Sender: FDA-Public Use
  Company Number: US-GILEAD-2018-0362351

PATIENT
  Age: 59 Year
  Sex: Female
  Weight: 63.2 kg

DRUGS (53)
  1. AXICABTAGENE CILOLEUCEL [Suspect]
     Active Substance: AXICABTAGENE CILOLEUCEL
     Indication: DIFFUSE LARGE B-CELL LYMPHOMA
     Dosage: 68
     Route: 042
     Dates: start: 20180911, end: 20180911
  2. FERROUS SULFATE. [Concomitant]
     Active Substance: FERROUS SULFATE
     Dosage: 325,MG,DAILY
     Route: 048
     Dates: start: 20151009, end: 20180922
  3. HYDROMORPHONE [Concomitant]
     Active Substance: HYDROMORPHONE
     Dosage: 2,MG,AS NECESSARY
     Route: 048
     Dates: start: 20180906, end: 20180910
  4. ACETAMINOPHEN. [Concomitant]
     Active Substance: ACETAMINOPHEN
     Dosage: 1000,MG,FOUR TIMES DAILY
     Route: 048
     Dates: start: 20180907, end: 20180917
  5. NYSTATIN. [Concomitant]
     Active Substance: NYSTATIN
     Dosage: 100000,OTHER,FOUR TIMES DAILY
     Route: 048
     Dates: start: 20180910, end: 20180920
  6. FLUCONAZOLE. [Concomitant]
     Active Substance: FLUCONAZOLE
     Dosage: 300,MG,DAILY
     Route: 048
     Dates: start: 20180913, end: 20180915
  7. LORATADINE. [Concomitant]
     Active Substance: LORATADINE
     Dosage: 10,MG,AS NECESSARY
     Route: 048
     Dates: start: 20180922
  8. TYLENOL [Concomitant]
     Active Substance: ACETAMINOPHEN
     Dosage: 1000,MG,AS NECESSARY
     Route: 048
     Dates: start: 20180829, end: 20181129
  9. HYDROMORPHONE [Concomitant]
     Active Substance: HYDROMORPHONE
     Dosage: 0.9,OTHER,AS NECESSARY
     Route: 042
     Dates: start: 20180908, end: 20180908
  10. ONDANSETRON [Concomitant]
     Active Substance: ONDANSETRON
     Dosage: 8,MG,AS NECESSARY
     Route: 048
     Dates: start: 20180907
  11. DIPHENHYDRAMINE. [Concomitant]
     Active Substance: DIPHENHYDRAMINE
     Dosage: 12.5,MG,ONCE
     Route: 042
     Dates: start: 20180911, end: 20180911
  12. RED BLOOD CELLS [Concomitant]
     Active Substance: HUMAN RED BLOOD CELL
     Dosage: 1,OTHER,ONCE
     Route: 042
     Dates: start: 20180916, end: 20180916
  13. BENZONATATE. [Concomitant]
     Active Substance: BENZONATATE
     Dosage: 100,MG,DAILY
     Route: 048
     Dates: start: 20180916, end: 20180916
  14. VANCOMYCIN [Concomitant]
     Active Substance: VANCOMYCIN
     Dosage: 820,MG,CONTINUOUS
     Route: 042
     Dates: start: 20180918, end: 20180919
  15. CEFDINIR. [Concomitant]
     Active Substance: CEFDINIR
     Dosage: 300,MG,TWICE DAILY
     Route: 048
     Dates: start: 20180925, end: 20180930
  16. LACTOBACILLUS ACIDOPHILUS [Concomitant]
     Active Substance: LACTOBACILLUS ACIDOPHILUS
     Dosage: UN,OTHER,TWICE DAILY
     Route: 048
     Dates: start: 20180417, end: 20180922
  17. TRAMADOL HCL [Concomitant]
     Active Substance: TRAMADOL HYDROCHLORIDE
     Dosage: 50,MG,FOUR TIMES DAILY
     Route: 048
     Dates: start: 20180417, end: 20180906
  18. FOLIC ACID. [Concomitant]
     Active Substance: FOLIC ACID
     Dosage: 800,UG,DAILY
     Route: 048
     Dates: start: 20180529, end: 20180922
  19. OXYCODONE [Concomitant]
     Active Substance: OXYCODONE
     Dosage: 5-10,MG,AS NECESSARY
     Route: 048
     Dates: start: 20180907
  20. HYDROMORPHONE [Concomitant]
     Active Substance: HYDROMORPHONE
     Dosage: 0.4,MG,ONCE
     Route: 042
     Dates: start: 20180906, end: 20180906
  21. SENOKOT-S [Concomitant]
     Active Substance: DOCUSATE SODIUM\SENNOSIDES
     Dosage: 8.6-50,MG,TWICE DAILY
     Route: 048
     Dates: start: 20180907
  22. CEFEPIME [Concomitant]
     Active Substance: CEFEPIME HYDROCHLORIDE
     Dosage: 2,G,TWICE DAILY
     Route: 042
     Dates: start: 20180918, end: 20180920
  23. OXYCODONE [Concomitant]
     Active Substance: OXYCODONE
     Dosage: 5,MG,OTHER
     Route: 048
     Dates: start: 20180828, end: 20180906
  24. IMMUNOGLOBULIN HUMAN [Concomitant]
     Active Substance: HUMAN IMMUNOGLOBULIN G
     Dosage: 20,G,ONCE
     Route: 042
     Dates: start: 20180917, end: 20180917
  25. PETROLATUM/MINERAL OIL [Concomitant]
     Dosage: 0.25,OTHER,DAILY
     Route: 031
     Dates: start: 20180922
  26. ZANTAC [Concomitant]
     Active Substance: RANITIDINE HYDROCHLORIDE
     Dosage: UK,OTHER,AS NECESSARY
     Route: 048
     Dates: start: 20181005, end: 20181129
  27. CYCLOPHOSPHAMIDE. [Suspect]
     Active Substance: CYCLOPHOSPHAMIDE
     Indication: BONE MARROW CONDITIONING REGIMEN
     Dosage: 800 MG, QD
     Route: 042
     Dates: start: 20180906, end: 20180908
  28. LIDOCAINE HCL [Concomitant]
     Active Substance: LIDOCAINE HYDROCHLORIDE
     Dosage: 15,ML,OTHER
     Route: 048
     Dates: start: 20180731, end: 20180922
  29. NYSTATIN. [Concomitant]
     Active Substance: NYSTATIN
     Dosage: 500000,OTHER,FOUR TIMES DAILY
     Route: 048
     Dates: start: 20181001, end: 20181007
  30. REFRESH CLASSIC LUCRICANT EYE DROPS [Concomitant]
     Dosage: 1.4-0.6,OTHER,AS NECESSARY
     Route: 031
     Dates: start: 20180911
  31. ENOXAPARIN [Concomitant]
     Active Substance: ENOXAPARIN
     Dosage: 40,MG,DAILY
     Route: 030
     Dates: start: 20180913, end: 20180917
  32. MILK THISTLE [SILYBUM MARIANUM] [Concomitant]
     Active Substance: DIETARY SUPPLEMENT\HERBALS\MILK THISTLE
     Dosage: 100,OTHER,UNKNOWN
     Route: 048
     Dates: start: 20180101, end: 20180922
  33. ALLOPURINOL. [Concomitant]
     Active Substance: ALLOPURINOL
     Dosage: 300,MG,DAILY
     Route: 048
     Dates: start: 20180821, end: 20180916
  34. LORAZEPAM. [Concomitant]
     Active Substance: LORAZEPAM
     Dosage: 0.5,MG,THREE TIMES DAILY
     Route: 048
     Dates: start: 20180822, end: 20180910
  35. PROCHLORPERAZINE. [Concomitant]
     Active Substance: PROCHLORPERAZINE
     Dosage: 10,MG,AS NECESSARY
     Route: 048
     Dates: start: 20180905
  36. OXYCONTIN [Concomitant]
     Active Substance: OXYCODONE HYDROCHLORIDE
     Dosage: 10,MG,TWICE DAILY
     Route: 048
     Dates: start: 20180907, end: 20180908
  37. OXYCONTIN [Concomitant]
     Active Substance: OXYCODONE HYDROCHLORIDE
     Dosage: 15,MG,TWICE DAILY
     Route: 048
     Dates: start: 20180908, end: 20181018
  38. LEVETIRACETAM. [Concomitant]
     Active Substance: LEVETIRACETAM
     Dosage: 500,MG,TWICE DAILY
     Route: 048
     Dates: start: 20180910, end: 20181010
  39. FLUDARABINE [Suspect]
     Active Substance: FLUDARABINE PHOSPHATE
     Indication: BONE MARROW CONDITIONING REGIMEN
     Dosage: 50 MG, QD
     Route: 042
     Dates: start: 20180906, end: 20180908
  40. CHOLECALCIFEROL [Concomitant]
     Active Substance: CHOLECALCIFEROL
     Dosage: 5000,IU,DAILY
     Route: 048
     Dates: start: 20150224, end: 20180922
  41. MAGNESIUM GLUCONATE [Concomitant]
     Active Substance: MAGNESIUM GLUCONATE
     Dosage: 500,MG,DAILY
     Route: 048
     Dates: start: 20180727, end: 20180910
  42. DEXAMETHASONE. [Concomitant]
     Active Substance: DEXAMETHASONE
     Dosage: 10,MG,ONCE
     Route: 042
     Dates: start: 20180829, end: 20180829
  43. MORPHINE [Concomitant]
     Active Substance: MORPHINE
     Dosage: 2,MG,ONCE
     Route: 042
     Dates: start: 20180829, end: 20180829
  44. OMEGA3-VITB6-B12-E-FA-FISH OIL [Concomitant]
     Dosage: 600-20-500-800,OTHER,DAILY
     Route: 048
     Dates: start: 20180907, end: 20180922
  45. POLYETHYLENE GLYCOL [Concomitant]
     Active Substance: POLYETHYLENE GLYCOLS
     Dosage: 17,G,AS NECESSARY
     Route: 048
     Dates: start: 20180922
  46. B-COMPLEX [VITAMIN B COMPLEX] [Concomitant]
     Dosage: UN,OTHER,UNKNOWN
     Route: 048
     Dates: end: 20180922
  47. FISH OIL OMEGA 3 [Concomitant]
     Active Substance: FISH OIL
     Dosage: UN,OTHER,UNKNOWN
     Route: 048
     Dates: end: 20180922
  48. ACETAMINOPHEN. [Concomitant]
     Active Substance: ACETAMINOPHEN
     Dosage: 650,MG,AS NECESSARY
     Route: 048
     Dates: start: 20180914, end: 20180920
  49. SULFAMETHOXAZOLE;TRIMETHOPRIM [Concomitant]
     Active Substance: SULFAMETHOXAZOLE\TRIMETHOPRIM
     Dosage: 400-80,MG,DAILY
     Route: 048
     Dates: start: 20180910
  50. ACYCLOVIR [ACICLOVIR] [Concomitant]
     Active Substance: ACYCLOVIR
     Dosage: 400,MG,TWICE DAILY
     Route: 048
     Dates: start: 20180912
  51. TRAZODONE [Concomitant]
     Active Substance: TRAZODONE HYDROCHLORIDE
     Dosage: 50,MG,AS NECESSARY
     Route: 048
     Dates: start: 20180916, end: 20180920
  52. LEVOFLOXACIN. [Concomitant]
     Active Substance: LEVOFLOXACIN
     Dosage: 500,MG,ONCE
     Route: 048
     Dates: start: 20180917, end: 20180917
  53. FILGRASTIM [Concomitant]
     Active Substance: FILGRASTIM
     Dosage: 300,UG,DAILY
     Route: 042
     Dates: start: 20180918, end: 20180920

REACTIONS (8)
  - Pyrexia [Recovered/Resolved]
  - Headache [Recovered/Resolved]
  - Tumour pain [Recovered/Resolved]
  - Cytokine release syndrome [Recovered/Resolved]
  - Hypotension [Recovered/Resolved]
  - Nausea [Recovered/Resolved]
  - Fatigue [Recovered/Resolved]
  - Neutrophil count decreased [Recovered/Resolved]

NARRATIVE: CASE EVENT DATE: 20180907
